FAERS Safety Report 18025168 (Version 3)
Quarter: 2020Q3

REPORT INFORMATION
  Report Type: Spontaneous
  Country: GB (occurrence: GB)
  Receive Date: 20200715
  Receipt Date: 20200925
  Transmission Date: 20201103
  Serious: Yes (Other)
  Sender: FDA-Public Use
  Company Number: NVSC2020GB190700

PATIENT
  Age: 54 Year
  Sex: Male

DRUGS (72)
  1. PROPOFOL. [Suspect]
     Active Substance: PROPOFOL
     Indication: ILL-DEFINED DISORDER
     Dosage: UNK
     Route: 065
     Dates: start: 2006
  2. OMEPRAZOLE. [Suspect]
     Active Substance: OMEPRAZOLE
     Indication: ILL-DEFINED DISORDER
     Dosage: 40 MG
     Route: 042
     Dates: start: 2006
  3. HEPARIN SODIUM. [Suspect]
     Active Substance: HEPARIN SODIUM
     Indication: PRODUCT USED FOR UNKNOWN INDICATION
     Dosage: 3500 UG, QD
     Route: 065
  4. POTASSIUM PHOSPHATE DIBASIC [Suspect]
     Active Substance: POTASSIUM PHOSPHATE, DIBASIC
     Indication: ILL-DEFINED DISORDER
     Dosage: UNK
     Route: 065
  5. FUROSEMIDE. [Suspect]
     Active Substance: FUROSEMIDE
     Dosage: 20 MG, QD
     Route: 042
  6. FUROSEMIDE. [Suspect]
     Active Substance: FUROSEMIDE
     Dosage: 40 MG, QD
     Route: 065
     Dates: start: 2006
  7. PIRITON [Suspect]
     Active Substance: CHLORPHENIRAMINE MALEATE
     Dosage: 40 MG, QD
     Route: 042
     Dates: start: 2006
  8. ENOXAPARIN SODIUM. [Suspect]
     Active Substance: ENOXAPARIN SODIUM
     Indication: PRODUCT USED FOR UNKNOWN INDICATION
     Dosage: 20 MG, QD
     Route: 065
  9. ATROVENT [Concomitant]
     Active Substance: IPRATROPIUM BROMIDE
     Indication: ILL-DEFINED DISORDER
     Dosage: UNK, PRN
     Route: 048
  10. ERYTHROMYCIN. [Concomitant]
     Active Substance: ERYTHROMYCIN
     Dosage: DAILY DOSE: 250 MILLIGRAM(S)
     Route: 065
  11. CEFTRIAXONE SODIUM. [Suspect]
     Active Substance: CEFTRIAXONE SODIUM
     Indication: ILL-DEFINED DISORDER
     Dosage: 2 G
     Route: 042
     Dates: start: 2006
  12. HYDROCORTISONE SODIUM SUCCINATE [Suspect]
     Active Substance: HYDROCORTISONE SODIUM SUCCINATE
     Indication: ILL-DEFINED DISORDER
     Dosage: 100 MG, QD
     Route: 042
     Dates: start: 2006
  13. MAGNESIUM SULFATE. [Suspect]
     Active Substance: MAGNESIUM SULFATE
     Indication: ILL-DEFINED DISORDER
     Dosage: 10ML/50% 8MMOLS/50MLS
     Route: 065
     Dates: start: 2006
  14. NOREPINEPHRINE. [Suspect]
     Active Substance: NOREPINEPHRINE
     Indication: ILL-DEFINED DISORDER
     Dosage: UNK
     Route: 065
     Dates: start: 2006
  15. SODIUM BICARBONATE. [Suspect]
     Active Substance: SODIUM BICARBONATE
     Indication: ILL-DEFINED DISORDER
     Dosage: 100 MG
     Route: 042
     Dates: start: 2006
  16. FLAMAZINE [Suspect]
     Active Substance: SILVER SULFADIAZINE
     Indication: PRODUCT USED FOR UNKNOWN INDICATION
     Dosage: UNK
     Route: 061
  17. AMOXICILLIN. [Concomitant]
     Active Substance: AMOXICILLIN
     Indication: ILL-DEFINED DISORDER
     Dosage: DAILY DOSE: 250 MILLIGRAM(S)
     Route: 048
     Dates: start: 20060913
  18. IPRATROPIUM BROMIDE. [Concomitant]
     Active Substance: IPRATROPIUM BROMIDE
     Indication: PRODUCT USED FOR UNKNOWN INDICATION
     Dosage: UNK
     Route: 065
  19. AMOXICILLIN TRIHYDRATE [Suspect]
     Active Substance: AMOXICILLIN
     Indication: ILL-DEFINED DISORDER
     Dosage: 1 G, TID
     Route: 042
     Dates: start: 20060913
  20. TRICLOSAN. [Suspect]
     Active Substance: TRICLOSAN
     Indication: PRODUCT USED FOR UNKNOWN INDICATION
     Dosage: UNK
     Route: 065
  21. CALCIUM CHLORIDE. [Suspect]
     Active Substance: CALCIUM CHLORIDE
     Dosage: DAILY DOSE:  UNKNOWN
     Route: 065
     Dates: start: 2006
  22. TINZAPARIN [Suspect]
     Active Substance: TINZAPARIN
     Dosage: 3500 UL, QD
     Route: 065
     Dates: start: 2006
  23. SODIUM CHLORIDE. [Suspect]
     Active Substance: SODIUM CHLORIDE
     Indication: ILL-DEFINED DISORDER
     Dosage: 0.9 %
     Route: 042
     Dates: start: 2006
  24. CO?AMOXICLAV [Concomitant]
     Active Substance: AMOXICILLIN\CLAVULANATE POTASSIUM
     Dosage: 1125 MG, QD
     Route: 065
     Dates: start: 20060913
  25. VANCOMYCIN [Concomitant]
     Active Substance: VANCOMYCIN
     Dosage: DAILY DOSE TEXT: 1G 1/1DAYS
     Route: 042
  26. LACTULOSE. [Suspect]
     Active Substance: LACTULOSE
     Indication: ILL-DEFINED DISORDER
     Dosage: 10 ML
     Route: 065
     Dates: start: 2006
  27. SULFADIAZINE. [Suspect]
     Active Substance: SULFADIAZINE
     Indication: ILL-DEFINED DISORDER
     Dosage: UNK
     Route: 061
     Dates: start: 2006
  28. FUROSEMIDE. [Suspect]
     Active Substance: FUROSEMIDE
     Indication: ILL-DEFINED DISORDER
     Dosage: 20 MG, BID
     Route: 042
  29. AQUASEPT [Suspect]
     Active Substance: TRICLOSAN
     Indication: ILL-DEFINED DISORDER
     Dosage: UNK
     Route: 065
     Dates: start: 2006
  30. SODIUM HYDROGEN CARBONATE [Suspect]
     Active Substance: SODIUM BICARBONATE
     Indication: PRODUCT USED FOR UNKNOWN INDICATION
     Dosage: 100 MG, QH
     Route: 042
  31. ZOPICLONE [Concomitant]
     Active Substance: ZOPICLONE
     Dosage: DAILY DOSE:  UNKNOWN
     Route: 048
  32. VANCOMYCIN [Concomitant]
     Active Substance: VANCOMYCIN
     Indication: ILL-DEFINED DISORDER
     Dosage: 1 G, QD
     Route: 042
  33. TAZOCIN [Concomitant]
     Active Substance: PIPERACILLIN SODIUM\TAZOBACTAM SODIUM
     Indication: ILL-DEFINED DISORDER
     Dosage: 4.5 G, TID
     Route: 042
  34. ASPIRINE [Concomitant]
     Active Substance: ASPIRIN
     Indication: ILL-DEFINED DISORDER
     Dosage: UNKNOWN/D
     Route: 048
  35. SIMVASTATIN. [Suspect]
     Active Substance: SIMVASTATIN
     Indication: ILL-DEFINED DISORDER
     Dosage: 40 MG, QD
     Route: 065
     Dates: start: 2006
  36. SALBUTAMOL SULFATE [Suspect]
     Active Substance: ALBUTEROL SULFATE
     Indication: ILL-DEFINED DISORDER
     Dosage: UNK, PRN (NEBULISER)
     Route: 065
     Dates: start: 2006
  37. SANDO K (POTASSIUM CHLORIDE) [Suspect]
     Active Substance: POTASSIUM CHLORIDE
     Indication: ILL-DEFINED DISORDER
     Dosage: 6 DF, QD (2 DF, TID)
     Route: 065
     Dates: start: 2006
  38. ROCEPHIN [Suspect]
     Active Substance: CEFTRIAXONE SODIUM
     Indication: ILL-DEFINED DISORDER
     Dosage: DAILY DOSE: 2 GRAM(S)
     Route: 042
     Dates: start: 2006
  39. TAZOCIN [Concomitant]
     Active Substance: PIPERACILLIN SODIUM\TAZOBACTAM SODIUM
     Dosage: 4.5 MG, QD  (INCREASED TO 4 TIMES DAILY BETWEEN 04 OCT 2006 AND 09 OCT 2006)
     Route: 065
     Dates: start: 2006
  40. TAZOCIN [Concomitant]
     Active Substance: PIPERACILLIN SODIUM\TAZOBACTAM SODIUM
     Dosage: INCREASED TO 4 TIMES DAILY BETWEEN 04/10/2006 AND 09/10/2006
     Route: 042
  41. ACETYLSALICYLIC ACID [Concomitant]
     Active Substance: ASPIRIN
     Indication: PRODUCT USED FOR UNKNOWN INDICATION
     Dosage: UNK
     Route: 065
  42. PARACETAMOL [Suspect]
     Active Substance: ACETAMINOPHEN
     Indication: ILL-DEFINED DISORDER
     Dosage: UNK
     Route: 065
     Dates: start: 2006
  43. LORAZEPAM. [Suspect]
     Active Substance: LORAZEPAM
     Indication: ILL-DEFINED DISORDER
     Dosage: UNK
     Route: 065
     Dates: start: 2006
  44. POTASSIUM CHLORIDE. [Suspect]
     Active Substance: POTASSIUM CHLORIDE
     Indication: ILL-DEFINED DISORDER
     Dosage: UNK UNK, TID
     Route: 065
  45. PHYTOMENADIONE [Suspect]
     Active Substance: PHYTONADIONE
     Indication: ILL-DEFINED DISORDER
     Dosage: UNK
     Route: 065
     Dates: start: 2006
  46. FLUCONAZOLE. [Suspect]
     Active Substance: FLUCONAZOLE
     Indication: ILL-DEFINED DISORDER
     Dosage: 200 MG, QD
     Route: 042
     Dates: start: 2006
  47. DOBUTAMINE [Suspect]
     Active Substance: DOBUTAMINE HYDROCHLORIDE
     Indication: ILL-DEFINED DISORDER
     Dosage: UNK
     Route: 065
     Dates: start: 2006
  48. FRAGMIN [Suspect]
     Active Substance: DALTEPARIN SODIUM
     Indication: ILL-DEFINED DISORDER
     Dosage: 200 IU, QD
     Route: 058
     Dates: start: 2006
  49. VITAMIN K [Suspect]
     Active Substance: PHYTONADIONE
     Dosage: UNK
     Route: 065
     Dates: start: 2006
  50. CALCIUM GLUCONATE. [Suspect]
     Active Substance: CALCIUM GLUCONATE
     Indication: ILL-DEFINED DISORDER
     Dosage: 10 ML
     Route: 042
     Dates: start: 2006
  51. METOCHLOPRAMIDE [Concomitant]
     Active Substance: METOCLOPRAMIDE HYDROCHLORIDE
     Indication: ILL-DEFINED DISORDER
     Dosage: 10 MG
     Route: 042
  52. MIDODRINE [Concomitant]
     Active Substance: MIDODRINE
     Indication: ILL-DEFINED DISORDER
     Dosage: UNK
     Route: 048
  53. TAZOCIN [Concomitant]
     Active Substance: PIPERACILLIN SODIUM\TAZOBACTAM SODIUM
     Dosage: 13.5 G, QD (INCREASED TO 4 TIMES DAILY BETWEEN 04 OCT 2006 AND 09 OCT 2006)
     Route: 065
  54. CIPROFLOX [Concomitant]
     Active Substance: CIPROFLOXACIN HYDROCHLORIDE
     Indication: ILL-DEFINED DISORDER
     Dosage: 400 MG, QD
     Route: 042
  55. SANDO K (POTASSIUM CHLORIDE) [Suspect]
     Active Substance: POTASSIUM CHLORIDE
     Dosage: 2 DF, Q8H (DAILY DOSE TEXT: 2 DL 3/1DAYS)
     Route: 065
  56. CLEXANE [Suspect]
     Active Substance: ENOXAPARIN SODIUM
     Indication: ILL-DEFINED DISORDER
     Dosage: 20 MG, QD
     Route: 058
     Dates: start: 2006
  57. BACTROBAN [Suspect]
     Active Substance: MUPIROCIN\MUPIROCIN CALCIUM
     Indication: ILL-DEFINED DISORDER
     Dosage: UNK
     Route: 065
     Dates: start: 2006
  58. TINZAPARIN [Suspect]
     Active Substance: TINZAPARIN
     Dosage: 3500 UG, QD
     Route: 065
     Dates: start: 2006
  59. LANSOPRAZOLE. [Suspect]
     Active Substance: LANSOPRAZOLE
     Indication: ILL-DEFINED DISORDER
     Dosage: 30 MG
     Route: 065
     Dates: start: 2006
  60. PIRITON [Suspect]
     Active Substance: CHLORPHENIRAMINE MALEATE
     Indication: ILL-DEFINED DISORDER
     Dosage: 10 MG, QID
     Route: 042
  61. ALFENTANIL. [Suspect]
     Active Substance: ALFENTANIL
     Indication: ILL-DEFINED DISORDER
     Dosage: UNK
     Route: 065
     Dates: start: 2006
  62. VITAMIN K [Suspect]
     Active Substance: PHYTONADIONE
     Indication: ILL-DEFINED DISORDER
     Dosage: UNK
     Route: 065
  63. TAZOCIN [Concomitant]
     Active Substance: PIPERACILLIN SODIUM\TAZOBACTAM SODIUM
     Dosage: 4.5 G
     Route: 065
  64. ERYTHROMYCIN. [Concomitant]
     Active Substance: ERYTHROMYCIN
     Indication: ILL-DEFINED DISORDER
     Dosage: 250 MG (NASOGASTRIC ROUTE)
     Route: 065
  65. POTASSIUM CHLORIDE. [Suspect]
     Active Substance: POTASSIUM CHLORIDE
     Dosage: 40MMOLS/100ML INFUSION
     Route: 065
     Dates: start: 2006
  66. CALCIUM CHLORIDE. [Suspect]
     Active Substance: CALCIUM CHLORIDE
     Indication: ILL-DEFINED DISORDER
     Dosage: UNK
     Route: 065
  67. TINZAPARIN [Suspect]
     Active Substance: TINZAPARIN
     Indication: ILL-DEFINED DISORDER
     Dosage: 3500 UG, QD
     Route: 065
  68. THIAMINE HYDROCHLORIDE. [Suspect]
     Active Substance: THIAMINE HYDROCHLORIDE
     Indication: ILL-DEFINED DISORDER
     Dosage: 100 MG, QD
     Route: 048
     Dates: start: 2006
  69. HUMAN ACTRAPID [Suspect]
     Active Substance: INSULIN HUMAN
     Indication: TOXIC EPIDERMAL NECROLYSIS
     Dosage: 50 UNITS/50ML
     Route: 042
     Dates: start: 2006
  70. ZOPICLONE [Concomitant]
     Active Substance: ZOPICLONE
     Indication: ILL-DEFINED DISORDER
     Dosage: UNK
     Route: 048
  71. PANTOPRAZOLE [Concomitant]
     Active Substance: PANTOPRAZOLE
     Indication: ILL-DEFINED DISORDER
     Dosage: 40 MG
     Route: 042
  72. CO?AMOXICLAV [Concomitant]
     Active Substance: AMOXICILLIN\CLAVULANATE POTASSIUM
     Indication: ILL-DEFINED DISORDER
     Dosage: 375 MG, Q8H
     Route: 065
     Dates: start: 20060913

REACTIONS (1)
  - Toxic epidermal necrolysis [Unknown]

NARRATIVE: CASE EVENT DATE: 2006
